FAERS Safety Report 7430655-9 (Version None)
Quarter: 2011Q2

REPORT INFORMATION
  Report Type: 
  Country: None (occurrence: None)
  Receive Date: 20110421
  Receipt Date: 20110415
  Transmission Date: 20111010
  Serious: Yes (Death, Hospitalization)
  Sender: FDA-Public Use
  Company Number: DE-CEPHALON-2011001954

PATIENT
  Sex: Female

DRUGS (1)
  1. BENDAMUSTINE HCL [Suspect]
     Indication: LYMPHOPLASMACYTOID LYMPHOMA/IMMUNOCYTOMA
     Route: 042
     Dates: end: 20110307

REACTIONS (3)
  - PANCYTOPENIA [None]
  - BONE MARROW FAILURE [None]
  - LYMPHOPLASMACYTOID LYMPHOMA/IMMUNOCYTOMA [None]
